FAERS Safety Report 16634948 (Version 1)
Quarter: 2019Q3

REPORT INFORMATION
  Report Type: Spontaneous
  Country: US (occurrence: US)
  Receive Date: 20190726
  Receipt Date: 20190726
  Transmission Date: 20191004
  Serious: No
  Sender: FDA-Public Use
  Company Number: US-009507513-1907USA000777

PATIENT
  Sex: Female

DRUGS (7)
  1. MENOPUR [Suspect]
     Active Substance: FOLLITROPIN\LUTEINIZING HORMONE
     Indication: INFERTILITY
     Dosage: 225 IU INTERNATIONAL UNIT(S), QD
     Route: 058
     Dates: start: 20180316
  2. LEUPROLIDE [Suspect]
     Active Substance: LEUPROLIDE
     Dosage: UNK
     Dates: start: 20180316
  3. ESTRADIOL. [Concomitant]
     Active Substance: ESTRADIOL
     Dosage: UNK
  4. CABERGOLINE. [Concomitant]
     Active Substance: CABERGOLINE
     Dosage: UNK
  5. SYNTHROID [Concomitant]
     Active Substance: LEVOTHYROXINE SODIUM
     Dosage: UNK
  6. FOLLISTIM [Suspect]
     Active Substance: FOLLITROPIN
     Indication: INFERTILITY
     Dosage: 450 IU INTERNATIONAL UNIT(S), QD
     Route: 058
     Dates: start: 20180316
  7. PROGESTERONE. [Suspect]
     Active Substance: PROGESTERONE
     Dosage: UNK
     Dates: start: 20180316

REACTIONS (1)
  - Injection site pain [Unknown]
